FAERS Safety Report 8262674-7 (Version None)
Quarter: 2012Q2

REPORT INFORMATION
  Report Type: 
  Country: None (occurrence: None)
  Receive Date: 20120405
  Receipt Date: 20120327
  Transmission Date: 20120825
  Serious: Yes (Hospitalization, Other)
  Sender: FDA-Public Use
  Company Number: US-JNJFOC-20110704478

PATIENT
  Sex: Female

DRUGS (3)
  1. LEVAQUIN [Suspect]
     Indication: KIDNEY INFECTION
     Route: 048
     Dates: start: 20010101
  2. CIPROFLOXACIN [Suspect]
     Indication: KIDNEY INFECTION
     Route: 048
  3. LEVAQUIN [Suspect]
     Indication: NEPHROLITHIASIS
     Route: 048
     Dates: start: 20010101

REACTIONS (2)
  - TENDON RUPTURE [None]
  - ROTATOR CUFF SYNDROME [None]
